FAERS Safety Report 4327481-6 (Version None)
Quarter: 2004Q1

REPORT INFORMATION
  Report Type: 
  Country: None (occurrence: None)
  Receive Date: 20040325
  Receipt Date: 20040308
  Transmission Date: 20041129
  Serious: Yes (Death)
  Sender: FDA-Public Use
  Company Number: F01200300866

PATIENT
  Age: 67 Year
  Sex: Male

DRUGS (6)
  1. (OXALIPLATIN) - SOLUTION - 130 MG/M2 [Suspect]
     Dosage: 225 MG (130 MG/M2 ON DAY 2, Q3W) INTRAVENOUS NOS
     Route: 042
     Dates: start: 20030807, end: 20030807
  2. PACLITAXEL [Suspect]
     Dosage: 350 MG (200 MG/M2 ON DAY 1 Q3W) INTRAVENOUS NOS
     Route: 042
     Dates: start: 20030806, end: 20030806
  3. ESPIDIFEN (IBUPROFEN) [Concomitant]
  4. NOLOTIL(METAMIZOLE MAGNESIUM) [Concomitant]
  5. EPREX [Concomitant]
  6. LACTOFERRINA(IRON SUCCINYL-PROTEIN COMPLEX) [Concomitant]

REACTIONS (11)
  - ANAEMIA [None]
  - ASTHENIA [None]
  - ATELECTASIS [None]
  - BLOOD GLUCOSE DECREASED [None]
  - BLOOD POTASSIUM DECREASED [None]
  - DISEASE PROGRESSION [None]
  - LUNG INFILTRATION [None]
  - PNEUMONIA [None]
  - RENAL CYST [None]
  - RESPIRATORY FAILURE [None]
  - SPINAL DISORDER [None]
